FAERS Safety Report 6904395-6 (Version None)
Quarter: 2010Q3

REPORT INFORMATION
  Report Type: 
  Country: None (occurrence: None)
  Receive Date: 20100804
  Receipt Date: 20090515
  Transmission Date: 20110219
  Serious: No
  Sender: FDA-Public Use
  Company Number: US-PFIZER INC-2009189053

PATIENT
  Sex: Female
  Weight: 73.9 kg

DRUGS (4)
  1. LYRICA [Suspect]
     Indication: FIBROMYALGIA
     Dosage: 75 MG, 1X/DAY
     Route: 048
     Dates: start: 20090301
  2. PREDNISONE [Concomitant]
     Dosage: UNK
  3. BENICAR [Concomitant]
     Dosage: UNK
  4. ATENOLOL [Concomitant]
     Dosage: UNK

REACTIONS (1)
  - OEDEMA PERIPHERAL [None]
